FAERS Safety Report 4545471-5 (Version None)
Quarter: 2005Q1

REPORT INFORMATION
  Report Type: 
  Country: None (occurrence: None)
  Receive Date: 20050103
  Receipt Date: 20041217
  Transmission Date: 20050727
  Serious: Yes (Life-Threatening, Hospitalization, Other)
  Sender: FDA-Public Use
  Company Number: 2004117604

PATIENT
  Sex: Female

DRUGS (1)
  1. CELEBREX [Suspect]
     Indication: ANKLE FRACTURE
     Dosage: ORAL
     Route: 048

REACTIONS (9)
  - ALOPECIA [None]
  - CARDIAC ARREST [None]
  - DIABETES MELLITUS [None]
  - DIALYSIS [None]
  - DYSPNOEA [None]
  - LUNG DISORDER [None]
  - PULMONARY ARTERY ANEURYSM [None]
  - PYREXIA [None]
  - RENAL FAILURE [None]
